FAERS Safety Report 4754391-2 (Version None)
Quarter: 2005Q3

REPORT INFORMATION
  Report Type: 
  Country: None (occurrence: None)
  Receive Date: 20050829
  Receipt Date: 20050823
  Transmission Date: 20060218
  Serious: Yes (Hospitalization)
  Sender: FDA-Public Use
  Company Number: PHBS2005US12382

PATIENT
  Age: 45 Year
  Sex: Female

DRUGS (6)
  1. VINORELBINE [Concomitant]
  2. CAPECITABINE [Concomitant]
  3. BEVACIZUMAB [Concomitant]
  4. GEMCITABINE [Concomitant]
  5. CARBOPLATIN [Concomitant]
  6. LETROZOLE [Suspect]
     Indication: BREAST CANCER STAGE IV

REACTIONS (10)
  - ASCITES [None]
  - HEPATIC CIRRHOSIS [None]
  - HEPATIC FIBROSIS [None]
  - LIVER FUNCTION TEST ABNORMAL [None]
  - MEGAKARYOCYTES DECREASED [None]
  - MELAENA [None]
  - OESOPHAGEAL VARICES HAEMORRHAGE [None]
  - PORTAL HYPERTENSION [None]
  - SPLENOMEGALY [None]
  - THROMBOCYTOPENIA [None]
